FAERS Safety Report 23573526 (Version 1)
Quarter: 2024Q1

REPORT INFORMATION
  Report Type: Spontaneous
  Country: GB (occurrence: None)
  Receive Date: 20240228
  Receipt Date: 20240228
  Transmission Date: 20240410
  Serious: Yes (Other)
  Sender: FDA-Public Use
  Company Number: 2024A044112

PATIENT
  Age: 57 Year
  Sex: Female

DRUGS (20)
  1. DAPAGLIFLOZIN [Suspect]
     Active Substance: DAPAGLIFLOZIN
     Route: 048
     Dates: start: 20230203, end: 20230523
  2. ACETAZOLAMIDE [Concomitant]
     Active Substance: ACETAZOLAMIDE
     Dosage: TAKE ONE TABLET WHEN REQUIRED, MAX TWO TABLETS
     Dates: start: 20230802
  3. APRACLONIDINE HYDROCHLORIDE [Concomitant]
     Active Substance: APRACLONIDINE HYDROCHLORIDE
     Dosage: ONE DROP INTO RIGHT EYE TWICE DAILY
     Dates: start: 20230802
  4. ATORVASTATIN [Concomitant]
     Active Substance: ATORVASTATIN
     Dates: start: 20230306
  5. BISOPROLOL [Concomitant]
     Active Substance: BISOPROLOL\BISOPROLOL FUMARATE
     Dosage: MORNING
     Dates: start: 20230306
  6. BRIMONIDINE TARTRATE [Concomitant]
     Active Substance: BRIMONIDINE TARTRATE
     Dosage: TWICE A DAY TO THE RIGHT EYE- REPLACEMENT FOR A...
     Dates: start: 20230920
  7. CLOPIDOGREL [Concomitant]
     Active Substance: CLOPIDOGREL BISULFATE
     Dates: start: 20230306
  8. DORZOLAMIDE [Concomitant]
     Active Substance: DORZOLAMIDE
     Dosage: ONE DROP TWICE A DAY INTO THE RIGHT EYE
     Dates: start: 20230517
  9. FLUCLOXACILLIN [Concomitant]
     Active Substance: FLUCLOXACILLIN
     Dates: start: 20240105, end: 20240112
  10. FUROSEMIDE [Concomitant]
     Active Substance: FUROSEMIDE
     Dosage: MORNING
     Dates: start: 20230904
  11. INCLISIRAN [Concomitant]
     Active Substance: INCLISIRAN
     Dosage: BY HEALTHCARE PROFESSIONAL.
     Dates: start: 20240123
  12. LANSOPRAZOLE [Concomitant]
     Active Substance: LANSOPRAZOLE
     Dosage: MORNING
     Dates: start: 20230306
  13. LATANOPROST [Concomitant]
     Active Substance: LATANOPROST
     Dosage: ONE DROP AT NIGHT INTO THE RIGHT EYE
     Dates: start: 20230517
  14. LEVEMIR [Concomitant]
     Active Substance: INSULIN DETEMIR
     Dosage: 28 UNITS ONCE DAILY AT NIGHT
     Dates: start: 20230602, end: 20231211
  15. LEVOTHYROXINE [Concomitant]
     Active Substance: LEVOTHYROXINE\LEVOTHYROXINE SODIUM
     Dosage: MORNING
     Dates: start: 20230306
  16. ISOSORBIDE MONONITRATE [Concomitant]
     Active Substance: ISOSORBIDE MONONITRATE
     Dosage: MORNING
     Dates: start: 20231009
  17. NITROLINGUAL [Concomitant]
     Active Substance: NITROGLYCERIN
     Dosage: ONE TO TWO SPRAYS WHEN REQUIRED
     Dates: start: 20211025
  18. NOVORAPID [Concomitant]
     Active Substance: INSULIN ASPART
     Dosage: 30 UNITS THREE TIMES A DAY WITH MEALS
     Dates: start: 20230602
  19. RAMIPRIL [Concomitant]
     Active Substance: RAMIPRIL
     Dates: start: 20230306
  20. TRESIBA [Concomitant]
     Active Substance: INSULIN DEGLUDEC
     Dosage: 10 UNITS ONCE A DAY AS PER THE HOSPITAL DIABETE...
     Dates: start: 20231211

REACTIONS (1)
  - Ketosis [Recovered/Resolved]

NARRATIVE: CASE EVENT DATE: 20230203
